FAERS Safety Report 13952451 (Version 1)
Quarter: 2017Q3

REPORT INFORMATION
  Report Type: Spontaneous
  Country: US (occurrence: US)
  Receive Date: 20170911
  Receipt Date: 20170911
  Transmission Date: 20171128
  Serious: No
  Sender: FDA-Public Use
  Company Number: US-TEVA-727901ACC

PATIENT
  Age: 57 Year
  Sex: Female
  Weight: 77.18 kg

DRUGS (1)
  1. FENTANYL TRANSDERMAL SYSTEM [Suspect]
     Active Substance: FENTANYL
     Indication: PAIN
     Dosage: 25 MCG 5

REACTIONS (7)
  - Withdrawal syndrome [Unknown]
  - Diarrhoea [Unknown]
  - Wrong technique in product usage process [Unknown]
  - Chills [Unknown]
  - Headache [Unknown]
  - Product adhesion issue [Unknown]
  - Nausea [Unknown]

NARRATIVE: CASE EVENT DATE: 20161022
